FAERS Safety Report 23077045 (Version 3)
Quarter: 2023Q4

REPORT INFORMATION
  Report Type: Spontaneous
  Country: US (occurrence: US)
  Receive Date: 20231018
  Receipt Date: 20231212
  Transmission Date: 20240109
  Serious: Yes (Other)
  Sender: FDA-Public Use
  Company Number: US-BRISTOL-MYERS SQUIBB COMPANY-2023-144950

PATIENT
  Age: 74 Year
  Sex: Female

DRUGS (2)
  1. LENALIDOMIDE [Suspect]
     Active Substance: LENALIDOMIDE
     Indication: Myelodysplastic syndrome with excess blasts
     Dosage: TAKE 1 CAPSULE BY MOUTH WHOLE WITH WATER, WITH OR WITHOUT FOOD, AT APPROXIMATELY THE SAME TIME EACH
     Route: 048
     Dates: start: 20230905
  2. LENALIDOMIDE [Suspect]
     Active Substance: LENALIDOMIDE

REACTIONS (3)
  - Cough [Not Recovered/Not Resolved]
  - Pruritus [Recovered/Resolved]
  - Bronchitis [Recovering/Resolving]
